FAERS Safety Report 14368509 (Version 4)
Quarter: 2018Q1

REPORT INFORMATION
  Report Type: Spontaneous
  Country: DE (occurrence: DE)
  Receive Date: 20180109
  Receipt Date: 20180302
  Transmission Date: 20180509
  Serious: Yes (Life-Threatening, Hospitalization, Other)
  Sender: FDA-Public Use
  Company Number: DE-BAUSCH-BL-2018-000145

PATIENT
  Age: 26 Year
  Sex: Male
  Weight: 74 kg

DRUGS (12)
  1. METHOTREXATE. [Suspect]
     Active Substance: METHOTREXATE
     Indication: POST TRANSPLANT LYMPHOPROLIFERATIVE DISORDER
     Dosage: 4 G/M2
     Route: 042
  2. RITUXIMAB. [Suspect]
     Active Substance: RITUXIMAB
     Indication: POST TRANSPLANT LYMPHOPROLIFERATIVE DISORDER
     Dosage: 375 MG/QM; 5 CYCLES
     Route: 042
  3. CYTARABINE. [Suspect]
     Active Substance: CYTARABINE
     Indication: POST TRANSPLANT LYMPHOPROLIFERATIVE DISORDER
     Dosage: 3 G/QM; 5 CYCLES
     Route: 042
  4. RITUXIMAB. [Suspect]
     Active Substance: RITUXIMAB
     Indication: EPSTEIN-BARR VIRUS ASSOCIATED LYMPHOMA
     Route: 065
     Dates: start: 2013, end: 2014
  5. DEXAMETHASONE. [Suspect]
     Active Substance: DEXAMETHASONE
     Indication: BRAIN OEDEMA
     Route: 065
  6. HEPARIN [Concomitant]
     Active Substance: HEPARIN SODIUM
     Indication: ANTICOAGULANT THERAPY
     Route: 065
  7. MYCOPHENOLATE SODIUM [Suspect]
     Active Substance: MYCOPHENOLATE SODIUM
     Route: 065
     Dates: start: 2013
  8. MYCOPHENOLATE SODIUM [Suspect]
     Active Substance: MYCOPHENOLATE SODIUM
     Indication: IMMUNOSUPPRESSANT DRUG THERAPY
     Route: 065
  9. RITUXIMAB. [Suspect]
     Active Substance: RITUXIMAB
     Indication: CHEMOTHERAPY
     Dosage: DAILY DOSE: 500 MG MILLIGRAM(S) EVERY MONTH
     Route: 042
     Dates: start: 2013, end: 2013
  10. FOLINIC ACID [Concomitant]
     Active Substance: LEUCOVORIN
     Indication: POST TRANSPLANT LYMPHOPROLIFERATIVE DISORDER
     Dosage: 30MG/M2
     Route: 042
  11. METHYLPREDNISOLONE. [Suspect]
     Active Substance: METHYLPREDNISOLONE
     Indication: IMMUNOSUPPRESSANT DRUG THERAPY
     Dosage: DAILY DOSE: 4 MG MILLIGRAM(S) EVERY DAY
     Route: 065
     Dates: end: 2013
  12. LEUCOVORIN. [Suspect]
     Active Substance: LEUCOVORIN
     Indication: EPSTEIN-BARR VIRUS ASSOCIATED LYMPHOMA
     Route: 042

REACTIONS (14)
  - Renal transplant failure [Unknown]
  - Central nervous system lesion [Not Recovered/Not Resolved]
  - Sepsis [Recovered/Resolved]
  - Cytomegalovirus infection [Unknown]
  - Brain oedema [Not Recovered/Not Resolved]
  - Post transplant lymphoproliferative disorder [Recovering/Resolving]
  - Vision blurred [Not Recovered/Not Resolved]
  - Epstein-Barr virus associated lymphoma [Not Recovered/Not Resolved]
  - Off label use [Unknown]
  - Pneumonia cytomegaloviral [Unknown]
  - Leukopenia [Unknown]
  - Pneumocystis jirovecii pneumonia [Unknown]
  - Headache [Not Recovered/Not Resolved]
  - Pneumonia escherichia [Unknown]

NARRATIVE: CASE EVENT DATE: 201303
